FAERS Safety Report 7426270-3 (Version None)
Quarter: 2011Q2

REPORT INFORMATION
  Report Type: 
  Country: None (occurrence: None)
  Receive Date: 20110420
  Receipt Date: 20110414
  Transmission Date: 20111010
  Serious: Yes (Hospitalization)
  Sender: FDA-Public Use
  Company Number: A0903076A

PATIENT
  Sex: Male

DRUGS (10)
  1. NORVASC [Concomitant]
  2. AVAPRO [Concomitant]
  3. PRILOSEC [Concomitant]
  4. ULTRACET [Concomitant]
  5. AVANDIA [Suspect]
     Indication: DIABETES MELLITUS
     Dosage: 4MG TWICE PER DAY
     Route: 048
     Dates: start: 20000101, end: 20090720
  6. COREG [Concomitant]
  7. ALTACE [Concomitant]
  8. INSULIN [Concomitant]
  9. ZOCOR [Concomitant]
  10. PROMETHAZINE [Concomitant]

REACTIONS (2)
  - CARDIOVASCULAR DISORDER [None]
  - MYOCARDIAL INFARCTION [None]
